FAERS Safety Report 8396662 (Version 2)
Quarter: 2012Q4

REPORT INFORMATION
  Report Type: Report from Study
  Country: MX (occurrence: MX)
  Receive Date: 20120208
  Receipt Date: 20121003
  Transmission Date: 20130627
  Serious: Yes (Disabling)
  Sender: FDA-Public Use
  Company Number: PHHY2012MX009388

PATIENT
  Age: 58 Year
  Sex: Male

DRUGS (4)
  1. EXFORGE HCT [Suspect]
     Indication: HYPERTENSION
     Dosage: 160/5/12.5 mg
     Dates: start: 20111223
  2. METFORMIN [Concomitant]
     Indication: DIABETES MELLITUS
     Dosage: 850 mg, BID
  3. COPLAVIX [Concomitant]
  4. CITICOLINE [Concomitant]
     Dosage: 500 mg, UNK

REACTIONS (1)
  - Transient ischaemic attack [Recovered/Resolved with Sequelae]
